FAERS Safety Report 23198409 (Version 1)
Quarter: 2023Q4

REPORT INFORMATION
  Report Type: Spontaneous
  Country: CH (occurrence: CH)
  Receive Date: 20231117
  Receipt Date: 20231117
  Transmission Date: 20240110
  Serious: Yes (Death, Hospitalization, Congenital Anomaly, Other)
  Sender: FDA-Public Use
  Company Number: None

PATIENT
  Sex: Male
  Weight: 2.6 kg

DRUGS (4)
  1. LORAZEPAM [Suspect]
     Active Substance: LORAZEPAM
     Dosage: IN RESERVE, STOPPED UPON DIAGNOSIS OF PREGNANCY
     Route: 064
  2. SERTRALINE [Suspect]
     Active Substance: SERTRALINE HYDROCHLORIDE
     Dosage: 150 MG, DAILY
     Route: 064
  3. SERTRALINE [Suspect]
     Active Substance: SERTRALINE HYDROCHLORIDE
     Dosage: 100 MG, DAILY (150 MG/DAY REDUCED TO 100 MG/DAY, STOPPED AT THE START OF PREGNANCY)
     Route: 064
  4. ZOLPIDEM [Suspect]
     Active Substance: ZOLPIDEM TARTRATE
     Dosage: DAILY (1/2 TO 1 DF/DAY, STOPPED AT THE START OF PREGNANCY)
     Route: 064

REACTIONS (10)
  - Maternal exposure during pregnancy [Unknown]
  - Shock haemorrhagic [Fatal]
  - Neonatal pneumonia [Fatal]
  - Heart disease congenital [Not Recovered/Not Resolved]
  - Supraventricular tachycardia [Not Recovered/Not Resolved]
  - Intestinal ischaemia [Not Recovered/Not Resolved]
  - Acidosis [Not Recovered/Not Resolved]
  - Septic shock [Not Recovered/Not Resolved]
  - Device related bacteraemia [Not Recovered/Not Resolved]
  - Shock [Not Recovered/Not Resolved]

NARRATIVE: CASE EVENT DATE: 20221001
